FAERS Safety Report 6103211-2 (Version None)
Quarter: 2009Q1

REPORT INFORMATION
  Report Type: 
  Country: None (occurrence: None)
  Receive Date: 20090305
  Receipt Date: 20081223
  Transmission Date: 20090719
  Serious: Yes (Other)
  Sender: FDA-Public Use
  Company Number: US-PFIZER INC-2008159714

PATIENT
  Sex: Female
  Weight: 68.027 kg

DRUGS (20)
  1. CHANTIX [Suspect]
     Indication: SMOKING CESSATION THERAPY
     Dates: start: 20081101, end: 20081101
  2. NAPROXEN [Concomitant]
     Dosage: UNK
  3. BENTYL [Concomitant]
     Dosage: UNK
  4. BACTRIM [Concomitant]
     Dosage: UNK
  5. CALCIUM [Concomitant]
     Dosage: UNK
  6. VITAMIN B-12 [Concomitant]
     Dosage: UNK
  7. HYDROCORTISONE [Concomitant]
     Dosage: UNK
  8. GABAPENTIN [Concomitant]
     Dosage: UNK
  9. ZONISAMIDE [Concomitant]
     Dosage: UNK
  10. LEXAPRO [Concomitant]
     Dosage: UNK
  11. LORATADINE [Concomitant]
     Dosage: UNK
  12. DEPAKOTE [Concomitant]
     Dosage: UNK
  13. SOMA [Concomitant]
     Dosage: UNK
  14. OXYCONTIN [Concomitant]
     Dosage: UNK
  15. LEVOTHYROXINE [Concomitant]
     Dosage: UNK
  16. FOLIC ACID [Concomitant]
     Dosage: UNK
  17. ROZEREM [Concomitant]
     Dosage: UNK
  18. OMEPRAZOLE [Concomitant]
     Dosage: UNK
  19. TEMAZEPAM [Concomitant]
     Dosage: UNK
  20. VALIUM [Concomitant]
     Dosage: UNK

REACTIONS (8)
  - AMNESIA [None]
  - BIPOLAR DISORDER [None]
  - DEPRESSION [None]
  - DRUG INEFFECTIVE [None]
  - HALLUCINATION [None]
  - HYPERSOMNIA [None]
  - INCOHERENT [None]
  - SUICIDAL IDEATION [None]
